FAERS Safety Report 8300055 (Version 2)
Quarter: 2012Q4

REPORT INFORMATION
  Report Type: 
  Country: US (occurrence: US)
  Receive Date: 20111219
  Receipt Date: 20121112
  Transmission Date: 20130627
  Serious: Yes (Disabling, Other)
  Sender: FDA-Public Use
  Company Number: US-ASTRAZENECA-2011SE56755

PATIENT
  Age: 65 Year
  Sex: Male

DRUGS (1)
  1. CRESTOR [Suspect]
     Route: 048

REACTIONS (4)
  - Cerebrovascular accident [Unknown]
  - Cardiac failure [Unknown]
  - Cardiac disorder [Unknown]
  - Blood pressure abnormal [Unknown]
